FAERS Safety Report 11796934 (Version 4)
Quarter: 2015Q4

REPORT INFORMATION
  Report Type: Spontaneous
  Country: JP (occurrence: JP)
  Receive Date: 20151203
  Receipt Date: 20151228
  Transmission Date: 20160305
  Serious: Yes (Other)
  Sender: FDA-Public Use
  Company Number: PHJP2015JP021363

PATIENT
  Age: 62 Year
  Sex: Male

DRUGS (3)
  1. CARBOPLATIN. [Concomitant]
     Active Substance: CARBOPLATIN
     Indication: HYPERCALCAEMIA
     Dosage: UNK
     Route: 065
  2. ZOLEDRONATE [Suspect]
     Active Substance: ZOLEDRONIC ACID
     Indication: HYPERCALCAEMIA
     Dosage: UNK
     Route: 041
  3. PACLITAXEL. [Concomitant]
     Active Substance: PACLITAXEL
     Indication: HYPERCALCAEMIA
     Dosage: UNK
     Route: 065

REACTIONS (4)
  - Pleural effusion [Recovering/Resolving]
  - Pulmonary cavitation [Recovering/Resolving]
  - Hypercalcaemia [Recovering/Resolving]
  - Pyrexia [Recovering/Resolving]
